FAERS Safety Report 4354986-4 (Version None)
Quarter: 2004Q2

REPORT INFORMATION
  Report Type: 
  Country: None (occurrence: None)
  Receive Date: 20040504
  Receipt Date: 20040423
  Transmission Date: 20050107
  Serious: Yes (Other)
  Sender: FDA-Public Use
  Company Number: 2004028141

PATIENT
  Sex: Female

DRUGS (1)
  1. UNISOM [Suspect]
     Indication: SUICIDE ATTEMPT
     Dosage: 16 TABS AT ONCE, ORAL
     Route: 048
     Dates: start: 20040423, end: 20040423

REACTIONS (2)
  - INTENTIONAL OVERDOSE [None]
  - SUICIDE ATTEMPT [None]
